FAERS Safety Report 9292507 (Version 1)
Quarter: 2013Q2

REPORT INFORMATION
  Report Type: Spontaneous
  Country: US (occurrence: US)
  Receive Date: 20130516
  Receipt Date: 20130516
  Transmission Date: 20140414
  Serious: No
  Sender: FDA-Public Use
  Company Number: US-009507513-1305USA001031

PATIENT
  Sex: Female

DRUGS (2)
  1. CORICIDIN HBP FLU [Suspect]
     Indication: PRODUCT USED FOR UNKNOWN INDICATION
     Dosage: UNK, UNKNOWN
     Route: 048
  2. CORICIDIN HBP FLU [Suspect]
     Dosage: UNK, UNKNOWN
     Route: 048

REACTIONS (3)
  - Erythema [Unknown]
  - Swelling [Unknown]
  - Underdose [Unknown]
